FAERS Safety Report 22287988 (Version 1)
Quarter: 2023Q2

REPORT INFORMATION
  Report Type: Report from Study
  Country: US (occurrence: US)
  Receive Date: 20230505
  Receipt Date: 20230505
  Transmission Date: 20230721
  Serious: Yes (Death, Other)
  Sender: FDA-Public Use
  Company Number: US-TAKEDA-2023TUS044255

PATIENT
  Sex: Male

DRUGS (1)
  1. IXAZOMIB [Suspect]
     Active Substance: IXAZOMIB
     Indication: Thrombocytopenia
     Dosage: 3 MILLIGRAM, 1/WEEK
     Route: 048
     Dates: start: 202212

REACTIONS (1)
  - Death [Fatal]
